FAERS Safety Report 8978239 (Version 2)
Quarter: 2013Q3

REPORT INFORMATION
  Report Type: Other
  Country: GB (occurrence: GB)
  Receive Date: 20121220
  Receipt Date: 20130719
  Transmission Date: 20140515
  Serious: Yes (Other)
  Sender: FDA-Public Use
  Company Number: GB-WATSON-2012-22388

PATIENT
  Sex: Male

DRUGS (6)
  1. SULFAMETHOXAZOLE + TRIMETHOPRIM [Suspect]
     Indication: PRODUCT USED FOR UNKNOWN INDICATION
     Dosage: UNK
     Route: 065
     Dates: start: 201207
  2. SULFAMETHOXAZOLE + TRIMETHOPRIM [Suspect]
     Dosage: UNK
     Route: 065
     Dates: start: 201210
  3. THALIDOMIDE [Suspect]
     Indication: PLASMA CELL MYELOMA
     Dosage: UNK
     Route: 048
     Dates: start: 201207
  4. THALIDOMIDE [Suspect]
     Dosage: UNK
     Route: 048
     Dates: start: 201210
  5. CYCLOPHOSPHAMIDE [Concomitant]
     Indication: PLASMA CELL MYELOMA
     Route: 065
  6. DEXAMETHASONE [Concomitant]
     Indication: PLASMA CELL MYELOMA
     Route: 065

REACTIONS (3)
  - Toxic epidermal necrolysis [Recovered/Resolved]
  - Sepsis [Unknown]
  - Herpes simplex meningoencephalitis [Unknown]
